FAERS Safety Report 5485321-6 (Version None)
Quarter: 2007Q4

REPORT INFORMATION
  Report Type: 
  Country: None (occurrence: None)
  Receive Date: 20071010
  Receipt Date: 20071010
  Transmission Date: 20080405
  Serious: Yes (Other)
  Sender: FDA-Public Use
  Company Number: None

PATIENT
  Sex: Male
  Weight: 92.9874 kg

DRUGS (1)
  1. LIPITOR [Suspect]
     Indication: BLOOD CHOLESTEROL INCREASED
     Dosage: 20MG  DAILY  PO   (DURATION: MANY YEARS)
     Route: 048

REACTIONS (5)
  - AMNESIA [None]
  - ERECTILE DYSFUNCTION [None]
  - ILL-DEFINED DISORDER [None]
  - LIBIDO DECREASED [None]
  - MENTAL STATUS CHANGES [None]
